FAERS Safety Report 7405474-X (Version None)
Quarter: 2011Q2

REPORT INFORMATION
  Report Type: 
  Country: None (occurrence: None)
  Receive Date: 20110411
  Receipt Date: 20110214
  Transmission Date: 20111010
  Serious: Yes (Other)
  Sender: FDA-Public Use
  Company Number: US-BAYER-201025540NA

PATIENT
  Age: 17 Year
  Sex: Female
  Weight: 45.351 kg

DRUGS (11)
  1. YAZ [Suspect]
     Indication: PREMENSTRUAL SYNDROME
     Dosage: UNK
     Dates: start: 20070801, end: 20091001
  2. BUPROPION HYDROCHLORIDE [Concomitant]
     Dosage: 100 MG, UNK
     Route: 048
     Dates: start: 20080415
  3. CIPROFLOXACIN [Concomitant]
     Indication: URINARY TRACT INFECTION
     Dosage: 500 MG, UNK
     Route: 048
     Dates: start: 20080814
  4. YAZ [Suspect]
     Indication: CONTRACEPTION
     Dosage: UNK
     Route: 048
     Dates: start: 20070601, end: 20091001
  5. CITALOPRAM [Concomitant]
     Dosage: UNK MG, UNK
     Route: 048
     Dates: start: 20080324
  6. VIVOTIF [TYPHOID VACCINE] [Concomitant]
     Indication: FOREIGN TRAVEL
     Dosage: UNK
     Dates: start: 20081008
  7. OXYCODONE HCL AND ACETAMINOPHEN [Concomitant]
     Dosage: UNK
     Route: 048
     Dates: start: 20081223
  8. IBUPROFEN [Concomitant]
     Indication: PAIN
     Dosage: 400 MG, PRN
  9. M.V.I. [Concomitant]
  10. YAZ [Suspect]
     Dosage: UNK
     Dates: start: 20071016
  11. FISH OIL [Concomitant]

REACTIONS (2)
  - CHOLECYSTITIS CHRONIC [None]
  - CHOLELITHIASIS [None]
